FAERS Safety Report 8756538 (Version 1)
Quarter: 2012Q4

REPORT INFORMATION
  Report Type: 
  Country: US (occurrence: US)
  Receive Date: 20120828
  Receipt Date: 20120828
  Transmission Date: 20130627
  Serious: No
  Sender: FDA-Public Use
  Company Number: US-BIOGENIDEC-2012BI033296

PATIENT
  Age: 26 Year
  Sex: Male

DRUGS (1)
  1. TYSABRI [Suspect]
     Indication: MULTIPLE SCLEROSIS
     Route: 042
     Dates: start: 20111019

REACTIONS (8)
  - Abdominal pain upper [Recovered/Resolved]
  - Motor dysfunction [Recovered/Resolved]
  - Blindness [Recovered/Resolved]
  - Tinnitus [Recovered/Resolved]
  - Influenza like illness [Recovered/Resolved]
  - Nasopharyngitis [Recovered/Resolved]
  - Drug effect decreased [Recovered/Resolved]
  - Fatigue [Recovered/Resolved]
